FAERS Safety Report 12530043 (Version 1)
Quarter: 2016Q3

REPORT INFORMATION
  Report Type: Spontaneous
  Country: US (occurrence: None)
  Receive Date: 20160705
  Receipt Date: 20160705
  Transmission Date: 20161109
  Serious: Yes (Disabling)
  Sender: FDA-Public Use
  Company Number: None

PATIENT
  Age: 16 Year
  Sex: Female
  Weight: 54.89 kg

DRUGS (2)
  1. MEFLOQUINE, 250MG [Suspect]
     Active Substance: MEFLOQUINE
     Indication: MALARIA PROPHYLAXIS
     Route: 048
  2. CIPRO [Concomitant]
     Active Substance: CIPROFLOXACIN HYDROCHLORIDE

REACTIONS (6)
  - Drug dispensing error [None]
  - Nausea [None]
  - Wrong drug administered [None]
  - Vomiting [None]
  - Accidental overdose [None]
  - Diarrhoea [None]

NARRATIVE: CASE EVENT DATE: 20160627
